FAERS Safety Report 4767784-4 (Version None)
Quarter: 2005Q3

REPORT INFORMATION
  Report Type: 
  Country: None (occurrence: None)
  Receive Date: 20050912
  Receipt Date: 20050902
  Transmission Date: 20060218
  Serious: Yes (Other)
  Sender: FDA-Public Use
  Company Number: 2005-07-1223

PATIENT
  Age: 41 Year
  Sex: Female
  Weight: 43 kg

DRUGS (4)
  1. PEG-INTRON [Suspect]
     Indication: HEPATITIS C
     Dosage: 100 MCG QW SUBCUTANEOUS
     Route: 058
     Dates: start: 20050329, end: 20050715
  2. REBETOL [Suspect]
     Indication: HEPATITIS C
     Dosage: 400 MG ORAL
     Route: 048
     Dates: start: 20050329, end: 20050722
  3. OMEPRAZOLE [Concomitant]
  4. REBAMIPIDE [Concomitant]

REACTIONS (1)
  - RHEUMATOID ARTHRITIS [None]
